FAERS Safety Report 7472563-3 (Version None)
Quarter: 2011Q1

REPORT INFORMATION
  Report Type: 
  Country: None (occurrence: None)
  Receive Date: 20110302
  Receipt Date: 20101028
  Transmission Date: 20110831
  Serious: Yes (Other)
  Sender: FDA-Public Use
  Company Number: 163-21880-10101882

PATIENT
  Age: 64 Year
  Sex: Male

DRUGS (2)
  1. DEXAMETHASONE [Concomitant]
  2. REVLIMID [Suspect]
     Indication: MULTIPLE MYELOMA
     Dosage: 10 MG, DAILY FOR 14 DAYS, PO
     Route: 048
     Dates: start: 20090401, end: 20100101

REACTIONS (1)
  - CATARACT [None]
